FAERS Safety Report 6279314-9 (Version None)
Quarter: 2009Q3

REPORT INFORMATION
  Report Type: 
  Country: None (occurrence: None)
  Receive Date: 20090723
  Receipt Date: 20090130
  Transmission Date: 20100115
  Serious: No
  Sender: FDA-Public Use
  Company Number: US-AMGEN-KDL325370

PATIENT
  Sex: Female
  Weight: 55.4 kg

DRUGS (11)
  1. PROCRIT [Suspect]
     Indication: RENAL FAILURE CHRONIC
     Route: 058
     Dates: start: 20070426
  2. WARFARIN SODIUM [Concomitant]
  3. LIPITOR [Concomitant]
  4. ACTOS [Concomitant]
  5. ALLOPURINOL [Concomitant]
  6. CADUET [Concomitant]
  7. PRILOSEC [Concomitant]
  8. LASIX [Concomitant]
  9. ZAROXOLYN [Concomitant]
  10. ARIMIDEX [Concomitant]
  11. HYDRALAZINE HCL [Concomitant]

REACTIONS (1)
  - INTERNATIONAL NORMALISED RATIO DECREASED [None]
